FAERS Safety Report 13058949 (Version 1)
Quarter: 2016Q4

REPORT INFORMATION
  Report Type: Spontaneous
  Country: FR (occurrence: FR)
  Receive Date: 20161223
  Receipt Date: 20161223
  Transmission Date: 20170207
  Serious: Yes (Other)
  Sender: FDA-Public Use
  Company Number: FR-SA-2016SA229809

PATIENT
  Age: 85 Year
  Sex: Male

DRUGS (5)
  1. KARDEGIC [Suspect]
     Active Substance: ASPIRIN LYSINE
     Indication: STENT PLACEMENT
     Route: 048
     Dates: start: 20161021
  2. ZYLORIC [Concomitant]
     Active Substance: ALLOPURINOL
  3. TENORMIN [Concomitant]
     Active Substance: ATENOLOL
  4. TAHOR [Concomitant]
     Active Substance: ATORVASTATIN CALCIUM
  5. PLAVIX [Suspect]
     Active Substance: CLOPIDOGREL BISULFATE
     Indication: STENT PLACEMENT
     Route: 048
     Dates: start: 20161021

REACTIONS (5)
  - Fall [Unknown]
  - Haemarthrosis [Not Recovered/Not Resolved]
  - Oedema peripheral [Not Recovered/Not Resolved]
  - Pelvic fracture [Unknown]
  - Bone lesion [Unknown]

NARRATIVE: CASE EVENT DATE: 20161023
